FAERS Safety Report 7767027-3 (Version None)
Quarter: 2011Q3

REPORT INFORMATION
  Report Type: 
  Country: None (occurrence: None)
  Receive Date: 20110922
  Receipt Date: 20101015
  Transmission Date: 20111222
  Serious: No
  Sender: FDA-Public Use
  Company Number: US-ASTRAZENECA-2008UW28910

PATIENT
  Age: 11468 Day
  Sex: Female
  Weight: 94.8 kg

DRUGS (25)
  1. SEROQUEL [Suspect]
     Route: 048
     Dates: start: 20020101, end: 20030101
  2. SEROQUEL [Suspect]
     Dosage: 25 TO 800 MG
     Route: 048
     Dates: start: 20080101, end: 20090101
  3. SEROQUEL [Suspect]
     Dosage: 25 TO 800 MG
     Route: 048
     Dates: start: 20080101, end: 20090101
  4. RISPERDAL [Concomitant]
     Dates: start: 20030101, end: 20040101
  5. GEODON [Concomitant]
     Dates: start: 20100101
  6. THORAZINE [Concomitant]
     Dates: start: 19930101
  7. SEROQUEL [Suspect]
     Dosage: 25 TO 800 MG
     Route: 048
     Dates: start: 20020101, end: 20060101
  8. SEROQUEL [Suspect]
     Route: 048
     Dates: start: 20040101, end: 20050101
  9. RISPERDAL [Concomitant]
     Indication: BIPOLAR DISORDER
     Dosage: 3-6 MG
     Dates: start: 20020101, end: 20040101
  10. SEROQUEL [Suspect]
     Indication: BIPOLAR DISORDER
     Route: 048
     Dates: start: 19910101
  11. SEROQUEL [Suspect]
     Indication: SCHIZOPHRENIA
     Route: 048
     Dates: start: 19910101
  12. SEROQUEL [Suspect]
     Dosage: 25 TO 800 MG
     Route: 048
     Dates: start: 20020101, end: 20060101
  13. SEROQUEL [Suspect]
     Route: 048
     Dates: start: 20040101, end: 20050101
  14. SEROQUEL [Suspect]
     Dosage: 25 TO 800 MG
     Route: 048
     Dates: start: 20080101, end: 20090101
  15. ZYPREXA [Concomitant]
     Indication: BIPOLAR DISORDER
     Dates: start: 20090101, end: 20100301
  16. ABILIFY [Concomitant]
     Dates: start: 20090101
  17. DOXEPIN [Concomitant]
     Dates: start: 20100101
  18. SEROQUEL [Suspect]
     Route: 048
     Dates: start: 20020101, end: 20030101
  19. RISPERDAL [Concomitant]
     Indication: SCHIZOPHRENIA
     Dosage: 3-6 MG
     Dates: start: 20020101, end: 20040101
  20. RISPERDAL [Concomitant]
     Dates: start: 20030101, end: 20040101
  21. SEROQUEL [Suspect]
     Route: 048
     Dates: start: 20040101, end: 20050101
  22. SEROQUEL [Suspect]
     Indication: SCHIZOAFFECTIVE DISORDER
     Route: 048
     Dates: start: 19910101
  23. SEROQUEL [Suspect]
     Route: 048
     Dates: start: 20020101, end: 20030101
  24. SEROQUEL [Suspect]
     Dosage: 25 TO 800 MG
     Route: 048
     Dates: start: 20020101, end: 20060101
  25. ZYPREXA [Concomitant]
     Indication: SCHIZOPHRENIA
     Dates: start: 20090101, end: 20100301

REACTIONS (5)
  - BLOOD CHOLESTEROL INCREASED [None]
  - TYPE 2 DIABETES MELLITUS [None]
  - BLOOD TRIGLYCERIDES INCREASED [None]
  - HYPERLIPIDAEMIA [None]
  - INTERVERTEBRAL DISC DISORDER [None]
